FAERS Safety Report 7064602-9 (Version None)
Quarter: 2010Q4

REPORT INFORMATION
  Report Type: 
  Country: None (occurrence: None)
  Receive Date: 20101019
  Receipt Date: 20101005
  Transmission Date: 20110411
  Serious: Yes (Disabling)
  Sender: FDA-Public Use
  Company Number: TUK2010A00273

PATIENT
  Age: 75 Year
  Sex: Male

DRUGS (6)
  1. ACTOS [Suspect]
     Indication: PRODUCT USED FOR UNKNOWN INDICATION
     Dosage: (30 MG) ORAL
     Route: 048
     Dates: start: 20060111, end: 20100922
  2. AMOXICILLIN [Concomitant]
  3. HYDROXOCOBALAMIN (HYDROXOCOBALAMIN) [Concomitant]
  4. LISINOPRIL [Concomitant]
  5. METFORMIN HCL [Concomitant]
  6. SIMVASTATIN [Concomitant]

REACTIONS (3)
  - BACK PAIN [None]
  - LUMBAR VERTEBRAL FRACTURE [None]
  - OSTEOPOROSIS [None]
